FAERS Safety Report 25610987 (Version 2)
Quarter: 2025Q3

REPORT INFORMATION
  Report Type: Spontaneous
  Country: EU (occurrence: EU)
  Receive Date: 20250728
  Receipt Date: 20250901
  Transmission Date: 20251021
  Serious: Yes (Other)
  Sender: AUROBINDO
  Company Number: EU-AUROBINDO-AUR-APL-2025-037276

PATIENT
  Sex: Male
  Weight: 75 kg

DRUGS (1)
  1. VALACYCLOVIR HYDROCHLORIDE [Suspect]
     Active Substance: VALACYCLOVIR HYDROCHLORIDE
     Indication: Viral infection
     Dosage: UNK, TWO TIMES A DAY (3 TABLETS)
     Route: 048
     Dates: start: 20250714, end: 20250715

REACTIONS (4)
  - Respiratory distress [Recovered/Resolved]
  - Hypersensitivity [Recovering/Resolving]
  - Eye irritation [Recovering/Resolving]
  - Product substitution issue [Unknown]

NARRATIVE: CASE EVENT DATE: 20250715
